FAERS Safety Report 15004635 (Version 3)
Quarter: 2021Q2

REPORT INFORMATION
  Report Type: Report from Study
  Country: IN (occurrence: IN)
  Receive Date: 20180613
  Receipt Date: 20210412
  Transmission Date: 20210716
  Serious: Yes (Hospitalization, Other)
  Sender: FDA-Public Use
  Company Number: PHHY2018IN019371

PATIENT
  Age: 43 Year
  Sex: Male
  Weight: 78 kg

DRUGS (4)
  1. DOMSTAL MD [Concomitant]
     Indication: PRODUCT USED FOR UNKNOWN INDICATION
     Dosage: 10 MG, PRN
     Route: 048
  2. TASIGNA [Suspect]
     Active Substance: NILOTINIB
     Indication: CHRONIC MYELOID LEUKAEMIA
     Dosage: 400 MG, BID
     Route: 048
     Dates: start: 20180507, end: 20210405
  3. LACTIFIBER [Concomitant]
     Indication: PRODUCT USED FOR UNKNOWN INDICATION
     Dosage: 3 TSP,QHS IN ONE GLASS OF WATER
     Route: 048
  4. RACIPER?D [Concomitant]
     Indication: PRODUCT USED FOR UNKNOWN INDICATION
     Dosage: 10 OT, UNK
     Route: 048

REACTIONS (8)
  - Vomiting [Recovering/Resolving]
  - Intentional overdose [Unknown]
  - Constipation [Not Recovered/Not Resolved]
  - Malignant neoplasm progression [Unknown]
  - Chronic myeloid leukaemia [Unknown]
  - Nausea [Recovering/Resolving]
  - Abdominal pain [Recovered/Resolved]
  - Philadelphia chromosome positive [Not Recovered/Not Resolved]

NARRATIVE: CASE EVENT DATE: 201805
